FAERS Safety Report 8290849-X (Version None)
Quarter: 2012Q2

REPORT INFORMATION
  Report Type: 
  Country: None (occurrence: None)
  Receive Date: 20120417
  Receipt Date: 20110607
  Transmission Date: 20120825
  Serious: No
  Sender: FDA-Public Use
  Company Number: US-ASTRAZENECA-2011SE34758

PATIENT
  Age: 50 Year
  Sex: Male

DRUGS (3)
  1. NEXIUM [Suspect]
     Route: 048
  2. OMEPRAZOLE [Suspect]
     Indication: HYPERCHLORHYDRIA
     Route: 048
  3. PROTONIX [Suspect]
     Indication: HYPERCHLORHYDRIA

REACTIONS (3)
  - DYSPEPSIA [None]
  - DRUG INEFFECTIVE [None]
  - HYPERCHLORHYDRIA [None]
